FAERS Safety Report 5657450-5 (Version None)
Quarter: 2008Q1

REPORT INFORMATION
  Report Type: 
  Country: None (occurrence: None)
  Receive Date: 20080310
  Receipt Date: 20080304
  Transmission Date: 20080703
  Serious: Yes (Hospitalization, Other)
  Sender: FDA-Public Use
  Company Number: US-GILEAD-2008-0015551

PATIENT
  Sex: Female
  Weight: 74.456 kg

DRUGS (8)
  1. LETAIRIS [Suspect]
     Indication: PULMONARY HYPERTENSION
     Route: 048
     Dates: start: 20071008
  2. NORVASC [Concomitant]
     Indication: PULMONARY HYPERTENSION
     Route: 048
     Dates: start: 20050101
  3. ISOSORB MONO [Concomitant]
     Indication: CORONARY ARTERY DISEASE
     Route: 048
  4. TOPROL-XL [Concomitant]
     Indication: CORONARY ARTERY DISEASE
     Route: 048
  5. LEVOTHYROXINE SODIUM [Concomitant]
     Indication: HYPOTHYROIDISM
     Route: 048
  6. AMBIEN [Concomitant]
     Indication: INSOMNIA
     Route: 048
  7. ASPIRIN [Concomitant]
     Indication: CORONARY ARTERY DISEASE
     Route: 048
  8. TEMAZEPAM [Concomitant]
     Indication: INSOMNIA
     Route: 048

REACTIONS (1)
  - FACIAL PALSY [None]
